FAERS Safety Report 13547279 (Version 2)
Quarter: 2017Q2

REPORT INFORMATION
  Report Type: Spontaneous
  Country: US (occurrence: US)
  Receive Date: 20170515
  Receipt Date: 20170622
  Transmission Date: 20170830
  Serious: No
  Sender: FDA-Public Use
  Company Number: US-ACTELION-A-NJ2017-153772

PATIENT
  Age: 53 Year
  Sex: Female
  Weight: 81.63 kg

DRUGS (8)
  1. UPTRAVI [Suspect]
     Active Substance: SELEXIPAG
     Dosage: 800 MCG, UNK
     Route: 048
  2. TYVASO [Suspect]
     Active Substance: TREPROSTINIL
     Indication: PULMONARY ARTERIAL HYPERTENSION
     Dosage: 18-72 MCG (3-12 BREATHS), QID
     Route: 045
     Dates: start: 20120808
  3. UPTRAVI [Suspect]
     Active Substance: SELEXIPAG
     Indication: PULMONARY ARTERIAL HYPERTENSION
     Dosage: 200 MCG, QD
     Route: 048
  4. LETAIRIS [Concomitant]
     Active Substance: AMBRISENTAN
  5. ADCIRCA [Concomitant]
     Active Substance: TADALAFIL
  6. TYVASO [Suspect]
     Active Substance: TREPROSTINIL
     Dosage: UNK
     Route: 065
  7. TYVASO [Suspect]
     Active Substance: TREPROSTINIL
     Dosage: 18-54 MCG (3 BREATHS), QID
     Route: 045
  8. UPTRAVI [Suspect]
     Active Substance: SELEXIPAG
     Dosage: 600 MCG, UNK
     Route: 048

REACTIONS (6)
  - Pain [Unknown]
  - Dyspnoea [Unknown]
  - Diarrhoea [Unknown]
  - Pulmonary arterial hypertension [Unknown]
  - Headache [Unknown]
  - Off label use [Unknown]
